FAERS Safety Report 8248302-5 (Version None)
Quarter: 2012Q1

REPORT INFORMATION
  Report Type: 
  Country: None (occurrence: None)
  Receive Date: 20120330
  Receipt Date: 20120326
  Transmission Date: 20120608
  Serious: Yes (Hospitalization, Other)
  Sender: FDA-Public Use
  Company Number: US-AMGEN-KDL442151

PATIENT
  Age: 77 Year
  Sex: Female
  Weight: 86.3 kg

DRUGS (8)
  1. PROCRIT [Suspect]
     Indication: PRODUCT USED FOR UNKNOWN INDICATION
     Dosage: UNK UNK, UNK
     Route: 058
     Dates: start: 20091101
  2. TOPROL-XL [Concomitant]
     Dosage: UNK UNK, UNK
     Route: 048
  3. ASPIRIN [Concomitant]
     Dosage: UNK UNK, UNK
     Route: 048
  4. ATENOLOL AND CHLORTHALIDONE [Concomitant]
     Dosage: UNK UNK, UNK
     Route: 048
  5. ALPRAZOLAM [Concomitant]
     Dosage: UNK UNK, UNK
     Route: 048
  6. DEXTROPROPOXYPHENE NAPSILATE W/ ACETAMINOPHEN [Concomitant]
     Dosage: UNK UNK, UNK
     Route: 048
  7. EZETIMIBE [Concomitant]
     Dosage: UNK UNK, UNK
     Route: 048
  8. SIMVASTATIN [Concomitant]
     Dosage: UNK UNK, UNK
     Route: 048

REACTIONS (5)
  - FOREIGN BODY [None]
  - UROSEPSIS [None]
  - CYSTITIS [None]
  - HYPOACUSIS [None]
  - KIDNEY INFECTION [None]
